FAERS Safety Report 8513901-X (Version None)
Quarter: 2012Q3

REPORT INFORMATION
  Report Type: 
  Country: None (occurrence: None)
  Receive Date: 20120705
  Receipt Date: 20120625
  Transmission Date: 20120928
  Serious: Yes (Other)
  Sender: FDA-Public Use
  Company Number: 2012SP035842

PATIENT
  Age: 53 Year
  Sex: Male

DRUGS (6)
  1. RIBAVIRIN [Suspect]
     Indication: PRODUCT USED FOR UNKNOWN INDICATION
  2. PRILOSEC [Concomitant]
  3. TRICOR [Concomitant]
  4. HYZAAR [Concomitant]
  5. VICTRELIS [Suspect]
     Indication: HEPATITIS C
     Dosage: 150 MCG, QW
     Dates: start: 20110901
  6. PEG-INTRON [Suspect]
     Indication: HEPATITIS C
     Dosage: 150 MCG, QW
     Dates: start: 20110901

REACTIONS (1)
  - PANCYTOPENIA [None]
